FAERS Safety Report 9908150 (Version 1)
Quarter: 2013Q2

REPORT INFORMATION
  Report Type: Spontaneous
  Country: US (occurrence: None)
  Receive Date: 20130305
  Receipt Date: 20130305
  Transmission Date: 20140414
  Serious: Yes (Other)
  Sender: FDA-Public Use
  Company Number: 163-21880-12071375

PATIENT
  Age: 62 Year
  Sex: Male

DRUGS (2)
  1. REVLIMID (LENALIDOMIDE) (25 MILLIGRAM, CAPSULES) [Suspect]
     Indication: PLASMA CELL MYELOMA
     Dosage: 25 MG, 11 IN 21 D, PO
     Route: 048
     Dates: start: 20120620, end: 201207
  2. BOTOX (BOTULINUM TOXIN TYPE A) (INJECTION) [Concomitant]

REACTIONS (5)
  - Contusion [None]
  - Cardiac failure congestive [None]
  - Fatigue [None]
  - Oedema [None]
  - Chest discomfort [None]
